FAERS Safety Report 7534581-6 (Version None)
Quarter: 2011Q2

REPORT INFORMATION
  Report Type: 
  Country: None (occurrence: None)
  Receive Date: 20110609
  Receipt Date: 20091008
  Transmission Date: 20111010
  Serious: Yes (Hospitalization, Other)
  Sender: FDA-Public Use
  Company Number: PHHY2009JP23876

PATIENT
  Sex: Female
  Weight: 48 kg

DRUGS (5)
  1. RED CELLS CONCENTRATES LEUKOCYTES REDUCED [Concomitant]
     Dosage: 2 UNITS EVERY 2 OR 3 WEEKS
     Route: 065
  2. NEORAL [Concomitant]
     Indication: GRAFT VERSUS HOST DISEASE
     Route: 048
     Dates: start: 20081201, end: 20090701
  3. EXJADE [Suspect]
     Indication: IRON OVERLOAD
  4. EXJADE [Suspect]
     Indication: LEUKAEMIA
     Dosage: 1000 MG, UNK
     Route: 048
     Dates: start: 20081028, end: 20081209
  5. PLATELETS, CONCENTRATES [Concomitant]
     Dosage: 10 UNITS EVERY WEEK
     Route: 065
     Dates: start: 20081220, end: 20090103

REACTIONS (7)
  - GAMMA-GLUTAMYLTRANSFERASE INCREASED [None]
  - ALANINE AMINOTRANSFERASE INCREASED [None]
  - PANCYTOPENIA [None]
  - ASPARTATE AMINOTRANSFERASE INCREASED [None]
  - GRAFT COMPLICATION [None]
  - BLOOD ALKALINE PHOSPHATASE INCREASED [None]
  - LIVER DISORDER [None]
